FAERS Safety Report 14992891 (Version 2)
Quarter: 2018Q2

REPORT INFORMATION
  Report Type: Spontaneous
  Country: US (occurrence: US)
  Receive Date: 20180610
  Receipt Date: 20180618
  Transmission Date: 20180711
  Serious: Yes (Death, Hospitalization)
  Sender: FDA-Public Use
  Company Number: US-JNJFOC-20180540658

PATIENT
  Age: 61 Year
  Sex: Male

DRUGS (3)
  1. XARELTO [Suspect]
     Active Substance: RIVAROXABAN
     Indication: PULMONARY EMBOLISM
     Dosage: 15MG AND 20 MG ONCE A DAY
     Route: 048
     Dates: start: 20160503, end: 201606
  2. XARELTO [Suspect]
     Active Substance: RIVAROXABAN
     Indication: DEEP VEIN THROMBOSIS
     Dosage: 15MG AND 20 MG ONCE A DAY
     Route: 048
     Dates: start: 20160503, end: 201606
  3. BABY ASPIRIN [Suspect]
     Active Substance: ASPIRIN
     Indication: PRODUCT USED FOR UNKNOWN INDICATION
     Route: 048
     Dates: end: 201606

REACTIONS (5)
  - Epistaxis [Fatal]
  - Lower gastrointestinal haemorrhage [Unknown]
  - Arteriosclerosis coronary artery [Fatal]
  - Chronic obstructive pulmonary disease [Fatal]
  - Fatigue [Unknown]

NARRATIVE: CASE EVENT DATE: 20160512
